FAERS Safety Report 4617864-9 (Version None)
Quarter: 2005Q1

REPORT INFORMATION
  Report Type: 
  Country: None (occurrence: None)
  Receive Date: 20050324
  Receipt Date: 20050317
  Transmission Date: 20050727
  Serious: Yes (Hospitalization)
  Sender: FDA-Public Use
  Company Number: AU-GLAXOSMITHKLINE-B0375754A

PATIENT
  Sex: Female

DRUGS (4)
  1. ZYBAN [Suspect]
     Indication: DRUG USE FOR UNKNOWN INDICATION
     Route: 065
  2. CONTRACEPTIVE PILL [Concomitant]
     Indication: CONTRACEPTION
     Route: 048
  3. VALIUM [Concomitant]
  4. SLEEPING TABLETS [Concomitant]

REACTIONS (10)
  - ANGER [None]
  - CRYING [None]
  - FALL [None]
  - FEELING ABNORMAL [None]
  - INTENTIONAL MISUSE [None]
  - MOOD SWINGS [None]
  - MULTIPLE DRUG OVERDOSE [None]
  - NIGHT SWEATS [None]
  - SUICIDE ATTEMPT [None]
  - TEARFULNESS [None]
